FAERS Safety Report 7156079-X (Version None)
Quarter: 2010Q4

REPORT INFORMATION
  Report Type: 
  Country: None (occurrence: None)
  Receive Date: 20101123
  Receipt Date: 20101021
  Transmission Date: 20110411
  Serious: Yes (Hospitalization)
  Sender: FDA-Public Use
  Company Number: 019905

PATIENT
  Sex: Female

DRUGS (12)
  1. CIMZIA [Suspect]
     Indication: CROHN'S DISEASE
     Dosage: 400 MG 1X/MONTH SUBCUTANEOUS
     Route: 058
     Dates: start: 20090425
  2. ATIVAN [Concomitant]
  3. CELEXA [Concomitant]
  4. LISINOPRIL [Concomitant]
  5. LYRICA [Concomitant]
  6. MANGESIUM OXIDE [Concomitant]
  7. METFORMIN HCL [Concomitant]
  8. NEXIUM [Concomitant]
  9. VICODIN [Concomitant]
  10. SIMVASTATIN [Concomitant]
  11. CALCIUM WITH VITAMIN D /00944201/ [Concomitant]
  12. BELLADENAL [Concomitant]

REACTIONS (2)
  - ABDOMINAL PAIN [None]
  - DIARRHOEA [None]
